FAERS Safety Report 25384938 (Version 1)
Quarter: 2025Q2

REPORT INFORMATION
  Report Type: Spontaneous
  Country: CZ (occurrence: CZ)
  Receive Date: 20250602
  Receipt Date: 20250602
  Transmission Date: 20250716
  Serious: Yes (Other)
  Sender: ROCHE
  Company Number: CZ-ROCHE-10000299421

PATIENT
  Sex: Male

DRUGS (1)
  1. ROZLYTREK [Suspect]
     Active Substance: ENTRECTINIB
     Indication: Papillary thyroid cancer
     Route: 065
     Dates: start: 202110, end: 202503

REACTIONS (3)
  - Ejection fraction decreased [Unknown]
  - Carotid arteriosclerosis [Unknown]
  - Anaemia [Unknown]
